FAERS Safety Report 20038352 (Version 1)
Quarter: 2021Q4

REPORT INFORMATION
  Report Type: Report from Study
  Country: US (occurrence: US)
  Receive Date: 20211105
  Receipt Date: 20211105
  Transmission Date: 20220303
  Serious: Yes (Other)
  Sender: FDA-Public Use
  Company Number: US-TAKEDA-2021TUS067041

PATIENT
  Age: 57 Year
  Sex: Female

DRUGS (3)
  1. HUMAN IMMUNOGLOBULIN G [Suspect]
     Active Substance: HUMAN IMMUNOGLOBULIN G
     Indication: Multifocal motor neuropathy
     Dosage: UNK UNK, Q4WEEKS
     Route: 042
     Dates: start: 201902, end: 201907
  2. HIZENTRA [Suspect]
     Active Substance: HUMAN IMMUNOGLOBULIN G
     Indication: Product used for unknown indication
     Dosage: UNK
     Route: 058
     Dates: start: 201909
  3. PREDNISONE [Concomitant]
     Active Substance: PREDNISONE
     Dosage: UNK
     Route: 048

REACTIONS (4)
  - Pulmonary embolism [Recovered/Resolved]
  - Jugular vein thrombosis [Recovered/Resolved]
  - Poor venous access [Recovered/Resolved]
  - Infusion site bruising [Recovered/Resolved]

NARRATIVE: CASE EVENT DATE: 20190707
